FAERS Safety Report 7198164-2 (Version None)
Quarter: 2010Q4

REPORT INFORMATION
  Report Type: 
  Country: None (occurrence: None)
  Receive Date: 20101227
  Receipt Date: 20101213
  Transmission Date: 20110411
  Serious: Yes (Hospitalization, Other)
  Sender: FDA-Public Use
  Company Number: PHHY2010DE61731

PATIENT
  Sex: Female
  Weight: 120 kg

DRUGS (17)
  1. RASILEZ HCT [Suspect]
     Indication: HYPERTENSION
     Dosage: 1 DF, QD
     Route: 048
     Dates: start: 20100201, end: 20100825
  2. FLUVASTATIN SODIUM [Suspect]
     Indication: HYPERCHOLESTEROLAEMIA
     Dosage: UNK
     Dates: start: 20100401
  3. ARCOXIA [Concomitant]
  4. AMLODIPINE [Concomitant]
     Indication: HYPERTENSION
     Dosage: 5 MG
  5. LYRICA [Concomitant]
     Indication: PAIN
     Dosage: UNK
     Dates: start: 20100401
  6. NEBIVOLOL [Concomitant]
     Indication: ARRHYTHMIA
     Dosage: 1 DF, QD
     Route: 048
     Dates: start: 20080201
  7. NEBIVOLOL [Concomitant]
     Indication: HYPERTENSION
  8. AMIODARON KWK [Concomitant]
     Indication: ARRHYTHMIA
     Dosage: 1 DF, QD
     Route: 048
     Dates: start: 20080201
  9. THYROXIN [Concomitant]
     Indication: HYPOTHYROIDISM
     Dosage: 1 DF, QD
  10. HYDROMORPHONE HYDROCHLORIDE [Concomitant]
     Indication: PAIN
     Dosage: UNK
     Dates: start: 20100501
  11. PANTOZOL [Concomitant]
     Indication: REFLUX OESOPHAGITIS
     Dosage: 1 DF, QD
     Dates: start: 20080601
  12. ASPIRIN [Concomitant]
     Indication: MITRAL VALVE REPLACEMENT
     Dosage: 1 DF, QD
     Dates: start: 20080601
  13. PALLADONE [Concomitant]
     Dosage: 1 DF, QD, 4 MG
  14. PALLADONE [Concomitant]
     Dosage: 8 MG
  15. KATADOLON [Concomitant]
     Dosage: 1 DF, QD
  16. IBU [Concomitant]
     Dosage: 1 DF, QD
  17. FUCIDINE CAP [Concomitant]

REACTIONS (18)
  - BLOODY DISCHARGE [None]
  - ERYTHEMA [None]
  - FEMUR FRACTURE [None]
  - FOOT DEFORMITY [None]
  - GAMMA-GLUTAMYLTRANSFERASE ABNORMAL [None]
  - GRANULOCYTE COUNT DECREASED [None]
  - KNEE ARTHROPLASTY [None]
  - LYMPHOCYTE COUNT DECREASED [None]
  - NECROSIS [None]
  - PAIN [None]
  - PETECHIAE [None]
  - RASH [None]
  - SEBORRHOEIC KERATOSIS [None]
  - SKIN DISORDER [None]
  - SKIN ULCER [None]
  - TELANGIECTASIA [None]
  - ULCER [None]
  - VASCULITIS [None]
